FAERS Safety Report 15091676 (Version 1)
Quarter: 2018Q2

REPORT INFORMATION
  Report Type: Report from Study
  Country: US (occurrence: US)
  Receive Date: 20180629
  Receipt Date: 20180629
  Transmission Date: 20180711
  Serious: No
  Sender: FDA-Public Use
  Company Number: US-AMGEN-USASP2011024660

PATIENT
  Age: 67 Year
  Sex: Female

DRUGS (7)
  1. LYRICA [Concomitant]
     Active Substance: PREGABALIN
  2. PROLIA [Suspect]
     Active Substance: DENOSUMAB
     Dosage: 60 MG, Q6MO
     Route: 058
  3. HYDROCODONE W/ACETAMINOPHEN [Concomitant]
     Active Substance: ACETAMINOPHEN\HYDROCODONE BITARTRATE
     Dosage: 1 UNK, UNK
  4. OSCAL                              /00108001/ [Concomitant]
  5. VITAMIN D                          /00107901/ [Concomitant]
     Active Substance: ERGOCALCIFEROL
     Dosage: 1 UNK, UNK
  6. AZOR                               /00595201/ [Concomitant]
     Active Substance: ALPRAZOLAM
     Dosage: UNK
  7. ERROLON [Concomitant]

REACTIONS (7)
  - Paraesthesia [Unknown]
  - Chest pain [Unknown]
  - Micturition urgency [Unknown]
  - Muscle spasms [Unknown]
  - Nasopharyngitis [Unknown]
  - Pruritus [Unknown]
  - Pyrexia [Unknown]

NARRATIVE: CASE EVENT DATE: 2011
